FAERS Safety Report 11357923 (Version 1)
Quarter: 2015Q3

REPORT INFORMATION
  Report Type: Spontaneous
  Country: US (occurrence: US)
  Receive Date: 20150803
  Receipt Date: 20150803
  Transmission Date: 20151125
  Serious: No
  Sender: FDA-Public Use
  Company Number: US-ELI_LILLY_AND_COMPANY-US201005007129

PATIENT
  Age: 7 Year
  Sex: Male

DRUGS (1)
  1. STRATTERA [Suspect]
     Active Substance: ATOMOXETINE HYDROCHLORIDE
     Indication: AUTISM
     Dosage: 10 MG, UNKNOWN
     Route: 065
     Dates: start: 20100520

REACTIONS (7)
  - Crying [Unknown]
  - Attention-seeking behaviour [Unknown]
  - Intentional product misuse [Unknown]
  - Anxiety [Unknown]
  - Dysphagia [Unknown]
  - Affective disorder [Unknown]
  - Off label use [Unknown]
